FAERS Safety Report 22110369 (Version 1)
Quarter: 2023Q1

REPORT INFORMATION
  Report Type: Spontaneous
  Country: US (occurrence: US)
  Receive Date: 20230317
  Receipt Date: 20230317
  Transmission Date: 20230417
  Serious: No
  Sender: FDA-Public Use
  Company Number: US-TEVA-2023-US-2865621

PATIENT

DRUGS (2)
  1. GLYBURIDE [Suspect]
     Active Substance: GLYBURIDE
     Indication: Blood glucose abnormal
     Dosage: 2.5 MG
  2. METFORMIN HYDROCHLORIDE [Suspect]
     Active Substance: METFORMIN HYDROCHLORIDE
     Indication: Blood glucose abnormal
     Dosage: 1000 MG

REACTIONS (1)
  - Drug ineffective [Unknown]
